FAERS Safety Report 12748471 (Version 1)
Quarter: 2016Q3

REPORT INFORMATION
  Report Type: Spontaneous
  Country: IT (occurrence: IT)
  Receive Date: 20160915
  Receipt Date: 20160915
  Transmission Date: 20161109
  Serious: Yes (Hospitalization)
  Sender: FDA-Public Use
  Company Number: IT-FRESENIUS KABI-FK201606588

PATIENT
  Age: 59 Year
  Sex: Female

DRUGS (2)
  1. IRINOTECAN (MANUFACTURER UNKNOWN) [Suspect]
     Active Substance: IRINOTECAN
     Indication: INTESTINAL ADENOCARCINOMA
     Route: 042
     Dates: start: 20160530, end: 20160818
  2. CETUXIMAB [Suspect]
     Active Substance: CETUXIMAB
     Indication: INTESTINAL ADENOCARCINOMA
     Route: 042
     Dates: start: 20160530, end: 20160818

REACTIONS (2)
  - Acute kidney injury [Recovered/Resolved]
  - Diarrhoea [Recovered/Resolved]

NARRATIVE: CASE EVENT DATE: 20160818
